FAERS Safety Report 16592299 (Version 1)
Quarter: 2019Q3

REPORT INFORMATION
  Report Type: Spontaneous
  Country: GB (occurrence: GB)
  Receive Date: 20190718
  Receipt Date: 20190718
  Transmission Date: 20191004
  Serious: Yes (Other)
  Sender: FDA-Public Use
  Company Number: GB-MYLANLABS-2019M1067112

PATIENT
  Age: 24 Year
  Sex: Female
  Weight: 120.65 kg

DRUGS (1)
  1. QUETIAPINE. [Suspect]
     Active Substance: QUETIAPINE
     Indication: MANIA
     Dosage: 150 MILLIGRAM
     Route: 048
     Dates: start: 20131019

REACTIONS (1)
  - Urinary incontinence [Not Recovered/Not Resolved]
